FAERS Safety Report 6045754-6 (Version None)
Quarter: 2009Q1

REPORT INFORMATION
  Report Type: 
  Country: None (occurrence: None)
  Receive Date: 20090121
  Receipt Date: 20090112
  Transmission Date: 20090719
  Serious: Yes (Hospitalization, Other)
  Sender: FDA-Public Use
  Company Number: PHHO2008AU13039

PATIENT
  Sex: Male

DRUGS (4)
  1. STI571/CGP57148B T35717+CAPS [Suspect]
     Indication: GASTROINTESTINAL STROMAL TUMOUR
     Dosage: 400 MG, QD
     Route: 048
     Dates: start: 20070817, end: 20080804
  2. STI571/CGP57148B T35717+CAPS [Suspect]
     Dosage: UNK
     Dates: start: 20080805
  3. SOMAC [Concomitant]
  4. ACETAMINOPHEN [Concomitant]

REACTIONS (24)
  - ABDOMINAL DISTENSION [None]
  - ABSCESS [None]
  - ANORECTAL DISORDER [None]
  - ANOREXIA [None]
  - CHOLELITHIASIS [None]
  - COLOSTOMY [None]
  - DIARRHOEA [None]
  - DIVERTICULUM [None]
  - ENEMA ADMINISTRATION [None]
  - GASTROINTESTINAL DISORDER [None]
  - HILAR LYMPHADENOPATHY [None]
  - INFLAMMATION [None]
  - INTESTINAL MASS [None]
  - INTESTINAL OPERATION [None]
  - INTESTINAL PERFORATION [None]
  - INTESTINAL RESECTION [None]
  - LARGE INTESTINAL OBSTRUCTION [None]
  - NODULE [None]
  - PAIN [None]
  - PNEUMOPERITONEUM [None]
  - POLYP [None]
  - PROCTITIS [None]
  - RECTAL LESION [None]
  - WEIGHT DECREASED [None]
